FAERS Safety Report 11399066 (Version 1)
Quarter: 2015Q3

REPORT INFORMATION
  Report Type: Spontaneous
  Country: US (occurrence: None)
  Receive Date: 20150818
  Receipt Date: 20150818
  Transmission Date: 20151125
  Serious: Yes (Other)
  Sender: FDA-Public Use
  Company Number: None

PATIENT
  Age: 30 Year

DRUGS (1)
  1. MIRENA [Suspect]
     Active Substance: LEVONORGESTREL

REACTIONS (9)
  - Abdominal distension [None]
  - Acne [None]
  - Alopecia [None]
  - Muscle spasms [None]
  - Pain [None]
  - Arthralgia [None]
  - Headache [None]
  - Fatigue [None]
  - Weight increased [None]

NARRATIVE: CASE EVENT DATE: 20150401
